FAERS Safety Report 8936208 (Version 3)
Quarter: 2013Q1

REPORT INFORMATION
  Report Type: Spontaneous
  Country: US (occurrence: US)
  Receive Date: 20121130
  Receipt Date: 20130306
  Transmission Date: 20140127
  Serious: Yes (Hospitalization)
  Sender: FDA-Public Use
  Company Number: US-BIOGENIDEC-2012BI055139

PATIENT
  Age: 71 Year
  Sex: Female

DRUGS (2)
  1. AVONEX [Suspect]
     Indication: MULTIPLE SCLEROSIS
     Route: 030
     Dates: start: 20000508
  2. 4-AP [Concomitant]
     Indication: BALANCE DISORDER
     Dates: start: 2005

REACTIONS (12)
  - Spinal fracture [Recovered/Resolved]
  - Multiple fractures [Not Recovered/Not Resolved]
  - Fall [Recovered/Resolved]
  - Muscle disorder [Not Recovered/Not Resolved]
  - Fracture malunion [Not Recovered/Not Resolved]
  - Concussion [Recovered/Resolved]
  - Nodule [Not Recovered/Not Resolved]
  - Pneumothorax [Not Recovered/Not Resolved]
  - Nasopharyngitis [Recovered/Resolved]
  - Underweight [Not Recovered/Not Resolved]
  - Dysstasia [Not Recovered/Not Resolved]
  - Hyperhidrosis [Not Recovered/Not Resolved]
